FAERS Safety Report 17298071 (Version 5)
Quarter: 2020Q2

REPORT INFORMATION
  Report Type: Spontaneous
  Country: US (occurrence: US)
  Receive Date: 20200121
  Receipt Date: 20200521
  Transmission Date: 20200713
  Serious: Yes (Hospitalization)
  Sender: FDA-Public Use
  Company Number: US-JNJFOC-20200122403

PATIENT
  Age: 50 Year
  Sex: Female
  Weight: 44.95 kg

DRUGS (4)
  1. STELARA [Suspect]
     Active Substance: USTEKINUMAB
     Indication: CROHN^S DISEASE
     Route: 058
     Dates: start: 20150303
  2. STELARA [Suspect]
     Active Substance: USTEKINUMAB
  3. RESTORIL [Concomitant]
     Active Substance: TEMAZEPAM
  4. PROVIGIL [Concomitant]
     Active Substance: MODAFINIL

REACTIONS (3)
  - Sinusitis [Not Recovered/Not Resolved]
  - Infection [Unknown]
  - Pulmonary embolism [Recovering/Resolving]

NARRATIVE: CASE EVENT DATE: 2019
